FAERS Safety Report 14137107 (Version 1)
Quarter: 2017Q4

REPORT INFORMATION
  Report Type: Spontaneous
  Country: US (occurrence: US)
  Receive Date: 20171027
  Receipt Date: 20171027
  Transmission Date: 20180321
  Serious: No
  Sender: FDA-Public Use
  Company Number: US-ELI_LILLY_AND_COMPANY-US201710007833

PATIENT
  Age: 86 Year
  Sex: Female

DRUGS (3)
  1. CALCIUM [Concomitant]
     Active Substance: CALCIUM
     Indication: PRODUCT USED FOR UNKNOWN INDICATION
  2. FORTEO [Suspect]
     Active Substance: TERIPARATIDE
     Indication: FALL
     Dosage: 20 UG, UNKNOWN
     Route: 058
  3. FORTEO [Suspect]
     Active Substance: TERIPARATIDE
     Indication: HAND FRACTURE

REACTIONS (4)
  - Fall [Unknown]
  - Hand fracture [Unknown]
  - Off label use [Unknown]
  - Drug dose omission [Not Recovered/Not Resolved]

NARRATIVE: CASE EVENT DATE: 20171013
